FAERS Safety Report 4535273-8 (Version None)
Quarter: 2004Q4

REPORT INFORMATION
  Report Type: 
  Country: None (occurrence: None)
  Receive Date: 20041214
  Receipt Date: 20040930
  Transmission Date: 20050328
  Serious: No
  Sender: FDA-Public Use
  Company Number: 2004237843US

PATIENT
  Age: 42 Year
  Sex: Female
  Weight: 56.7 kg

DRUGS (5)
  1. BEXTRA [Suspect]
     Indication: EPICONDYLITIS
     Dosage: 20 MG, QD, ORAL
     Route: 048
     Dates: start: 20040924, end: 20040929
  2. ZIAC [Concomitant]
  3. ADALAT [Concomitant]
  4. EVISTA [Concomitant]
  5. OCUVITE [Concomitant]

REACTIONS (1)
  - FURUNCLE [None]
